FAERS Safety Report 6768729-8 (Version None)
Quarter: 2010Q2

REPORT INFORMATION
  Report Type: 
  Country: None (occurrence: None)
  Receive Date: 20100614
  Receipt Date: 20100602
  Transmission Date: 20101027
  Serious: Yes (Death)
  Sender: FDA-Public Use
  Company Number: TR-GENENTECH-302712

PATIENT
  Sex: Female
  Weight: 80 kg

DRUGS (1)
  1. XOLAIR [Suspect]
     Indication: ASTHMA
     Dosage: 150 MG, 1/WEEK
     Route: 058
     Dates: start: 20100119, end: 20100517

REACTIONS (1)
  - DYSPNOEA [None]
